FAERS Safety Report 8165078-0 (Version None)
Quarter: 2012Q1

REPORT INFORMATION
  Report Type: 
  Country: None (occurrence: None)
  Receive Date: 20120227
  Receipt Date: 20090212
  Transmission Date: 20120608
  Serious: No
  Sender: FDA-Public Use
  Company Number: 2009BI004836

PATIENT
  Sex: Male

DRUGS (1)
  1. TYSABRI [Suspect]
     Indication: MULTIPLE SCLEROSIS
     Route: 042
     Dates: start: 20090129, end: 20110411

REACTIONS (4)
  - FATIGUE [None]
  - DRUG EFFECT DECREASED [None]
  - HYPOAESTHESIA [None]
  - FEELING COLD [None]
